FAERS Safety Report 5003900-7 (Version None)
Quarter: 2006Q2

REPORT INFORMATION
  Report Type: 
  Country: None (occurrence: None)
  Receive Date: 20060515
  Receipt Date: 20060503
  Transmission Date: 20061013
  Serious: Yes (Hospitalization)
  Sender: FDA-Public Use
  Company Number: MEDI-0004554

PATIENT
  Age: 7 Month

DRUGS (4)
  1. SYNAGIS [Suspect]
     Indication: ANTIVIRAL PROPHYLAXIS
     Dosage: 1 IN 30D, INTRAMUSCULAR
     Route: 030
     Dates: start: 20051118, end: 20051118
  2. SYNAGIS [Suspect]
     Indication: ANTIVIRAL PROPHYLAXIS
     Dosage: 1 IN 30D, INTRAMUSCULAR
     Route: 030
     Dates: start: 20060210, end: 20060210
  3. SYNAGIS [Suspect]
     Indication: ANTIVIRAL PROPHYLAXIS
     Dosage: 1 IN 30D, INTRAMUSCULAR
     Route: 030
     Dates: start: 20051216
  4. SYNAGIS [Suspect]
     Indication: ANTIVIRAL PROPHYLAXIS
     Dosage: 1 IN 30D, INTRAMUSCULAR
     Route: 030
     Dates: start: 20060113

REACTIONS (1)
  - BRONCHIOLITIS [None]
